FAERS Safety Report 4319019-4 (Version None)
Quarter: 2004Q1

REPORT INFORMATION
  Report Type: 
  Country: None (occurrence: None)
  Receive Date: 20040316
  Receipt Date: 20040302
  Transmission Date: 20041129
  Serious: Yes (Life-Threatening, Other)
  Sender: FDA-Public Use
  Company Number: JP_040302723

PATIENT
  Age: 5 Year
  Sex: Male

DRUGS (6)
  1. ONCOVIN [Suspect]
     Indication: BRAIN NEOPLASM
  2. ZOVIRAX [Concomitant]
  3. PANIPENEM [Concomitant]
  4. FAMOTIDINE [Concomitant]
  5. BAKTAR [Concomitant]
  6. DIFLUCAN [Concomitant]

REACTIONS (5)
  - BLOOD SODIUM DECREASED [None]
  - CONVULSION [None]
  - DIABETES INSIPIDUS [None]
  - INAPPROPRIATE ANTIDIURETIC HORMONE SECRETION [None]
  - NEUTROPHIL COUNT DECREASED [None]
